FAERS Safety Report 5269627-1 (Version None)
Quarter: 2007Q1

REPORT INFORMATION
  Report Type: 
  Country: None (occurrence: None)
  Receive Date: 20070320
  Receipt Date: 20070212
  Transmission Date: 20070707
  Serious: Yes (Other)
  Sender: FDA-Public Use
  Company Number: NO-RB-005289-07

PATIENT
  Age: 40 Year
  Sex: Male

DRUGS (1)
  1. SUBUTEX [Suspect]
     Route: 060
     Dates: start: 20060201

REACTIONS (1)
  - HALLUCINATION [None]
